FAERS Safety Report 6844495-2 (Version None)
Quarter: 2010Q3

REPORT INFORMATION
  Report Type: 
  Country: None (occurrence: None)
  Receive Date: 20100715
  Receipt Date: 20100603
  Transmission Date: 20110219
  Serious: Yes (Death, Other)
  Sender: FDA-Public Use
  Company Number: US-BAXTER-2010BH005217

PATIENT
  Age: 62 Year
  Sex: Male

DRUGS (15)
  1. HEPARIN SODIUM [Suspect]
     Indication: CORONARY ARTERY BYPASS
     Route: 040
     Dates: start: 20070507, end: 20070507
  2. HEPARIN SODIUM [Suspect]
     Indication: THROMBECTOMY
     Route: 040
     Dates: start: 20070507, end: 20070507
  3. HEPARIN SODIUM [Suspect]
     Route: 040
     Dates: start: 20070507, end: 20070507
  4. HEPARIN SODIUM [Suspect]
     Route: 040
     Dates: start: 20070507, end: 20070507
  5. HEPARIN SODIUM [Suspect]
     Route: 040
     Dates: start: 20070523, end: 20070523
  6. HEPARIN SODIUM [Suspect]
     Route: 040
     Dates: start: 20070523, end: 20070523
  7. HEPARIN SODIUM [Suspect]
     Route: 040
     Dates: start: 20070522, end: 20070525
  8. HEPARIN SODIUM [Suspect]
     Route: 040
     Dates: start: 20070522, end: 20070525
  9. HEPARIN SODIUM 1,000 UNITS AND SODIUM CHLORIDE 0.9% [Suspect]
     Indication: PRODUCT USED FOR UNKNOWN INDICATION
     Route: 041
     Dates: start: 20070507, end: 20070510
  10. HEPARIN SODIUM 5,000 UNITS IN DEXTROSE 5% [Suspect]
     Indication: PRODUCT USED FOR UNKNOWN INDICATION
     Route: 041
     Dates: start: 20070522, end: 20070525
  11. LIPITOR [Concomitant]
     Indication: PRODUCT USED FOR UNKNOWN INDICATION
     Route: 065
  12. ASPIRIN [Concomitant]
     Indication: PRODUCT USED FOR UNKNOWN INDICATION
     Route: 065
  13. METOPROLOL [Concomitant]
     Indication: PRODUCT USED FOR UNKNOWN INDICATION
     Route: 065
  14. LISINOPRIL [Concomitant]
     Indication: PRODUCT USED FOR UNKNOWN INDICATION
     Route: 065
  15. DIGOXIN [Concomitant]
     Indication: PRODUCT USED FOR UNKNOWN INDICATION
     Route: 065

REACTIONS (6)
  - CARDIAC FAILURE CONGESTIVE [None]
  - CORONARY ARTERY DISEASE [None]
  - DEEP VEIN THROMBOSIS [None]
  - HEART RATE INCREASED [None]
  - HYPOTENSION [None]
  - PULMONARY EMBOLISM [None]
